FAERS Safety Report 24747760 (Version 1)
Quarter: 2024Q4

REPORT INFORMATION
  Report Type: Spontaneous
  Country: CZ (occurrence: CZ)
  Receive Date: 20241218
  Receipt Date: 20241218
  Transmission Date: 20250114
  Serious: Yes (Hospitalization)
  Sender: AUROBINDO
  Company Number: CZ-RECORDATI-2024009310

PATIENT
  Age: 60 Year
  Sex: Male

DRUGS (12)
  1. METOPROLOL [Interacting]
     Active Substance: METOPROLOL
     Indication: Product used for unknown indication
     Dosage: UNK
     Route: 065
  2. DOSULEPIN HYDROCHLORIDE [Interacting]
     Active Substance: DOTHIEPIN HYDROCHLORIDE
     Indication: Product used for unknown indication
     Dosage: 50 MILLIGRAM, ONCE A DAY (25 MILLIGRAM, BID)
     Route: 065
  3. DOSULEPIN HYDROCHLORIDE [Interacting]
     Active Substance: DOTHIEPIN HYDROCHLORIDE
     Dosage: 25 MILLIGRAM, ONCE A DAY
     Route: 065
  4. CHLORPROTHIXENE HYDROCHLORIDE [Interacting]
     Active Substance: CHLORPROTHIXENE HYDROCHLORIDE
     Indication: Anxiety
     Dosage: 45 MILLIGRAM, ONCE A DAY (15 MILLIGRAM, TID)
     Route: 065
  5. CHLORPROTHIXENE HYDROCHLORIDE [Interacting]
     Active Substance: CHLORPROTHIXENE HYDROCHLORIDE
     Dosage: 15 MILLIGRAM, ONCE A DAY
     Route: 065
  6. LEVOMEPROMAZINE [Interacting]
     Active Substance: LEVOMEPROMAZINE
     Indication: Product used for unknown indication
     Dosage: 50 MILLIGRAM, ONCE A DAY (50 MILLIGRAM, QD (25 MILLIGRAM, 0-0-2))
     Route: 065
  7. LEVOMEPROMAZINE [Interacting]
     Active Substance: LEVOMEPROMAZINE
     Dosage: 25 MILLIGRAM, ONCE A DAY (0-0-2)
     Route: 065
  8. MIRTAZAPINE [Interacting]
     Active Substance: MIRTAZAPINE
     Indication: Product used for unknown indication
     Dosage: 15 MILLIGRAM, ONCE A DAY (IN THE EVENING)
     Route: 065
  9. TRAZODONE [Interacting]
     Active Substance: TRAZODONE HYDROCHLORIDE
     Indication: Product used for unknown indication
     Dosage: 50 MILLIGRAM, ONCE A DAY (IN THE EVENING)
     Route: 065
  10. AMLODIPINE BESYLATE [Suspect]
     Active Substance: AMLODIPINE BESYLATE
     Indication: Product used for unknown indication
     Route: 065
  11. PERINDOPRIL [Suspect]
     Active Substance: PERINDOPRIL
     Indication: Product used for unknown indication
     Route: 065
  12. INDAPAMIDE [Suspect]
     Active Substance: INDAPAMIDE
     Indication: Product used for unknown indication
     Route: 065

REACTIONS (3)
  - Orthostatic hypotension [Unknown]
  - Potentiating drug interaction [Unknown]
  - Drug interaction [Recovered/Resolved]
